FAERS Safety Report 6531790-X (Version None)
Quarter: 2010Q1

REPORT INFORMATION
  Report Type: 
  Country: None (occurrence: None)
  Receive Date: 20100108
  Receipt Date: 20100104
  Transmission Date: 20100710
  Serious: Yes (Hospitalization)
  Sender: FDA-Public Use
  Company Number: A0838364A

PATIENT
  Age: 51 Year
  Sex: Male

DRUGS (1)
  1. AVANDIA [Suspect]
     Route: 065
     Dates: start: 20020101, end: 20050901

REACTIONS (3)
  - CARDIAC FAILURE [None]
  - HYPERTENSION [None]
  - NEUROPATHY PERIPHERAL [None]
